FAERS Safety Report 5849118-7 (Version None)
Quarter: 2008Q3

REPORT INFORMATION
  Report Type: 
  Country: None (occurrence: None)
  Receive Date: 20080815
  Receipt Date: 20080801
  Transmission Date: 20090109
  Serious: Yes (Death, Hospitalization, Disabling)
  Sender: FDA-Public Use
  Company Number: 8035759

PATIENT
  Age: 21 Year
  Sex: Male

DRUGS (3)
  1. PREDNISOLONE [Suspect]
     Indication: PROPHYLACTIC CHEMOTHERAPY
  2. VINCRISTINE [Suspect]
     Indication: PROPHYLACTIC CHEMOTHERAPY
     Dosage: CYCLO
  3. CYCLOPHOSPHAMIDE [Suspect]
     Indication: PROPHYLACTIC CHEMOTHERAPY

REACTIONS (20)
  - ACCOMMODATION DISORDER [None]
  - AREFLEXIA [None]
  - AUTONOMIC NERVOUS SYSTEM IMBALANCE [None]
  - CRANIAL NERVE DISORDER [None]
  - DIPLOPIA [None]
  - DYSARTHRIA [None]
  - DYSPHAGIA [None]
  - DYSPHONIA [None]
  - EYELID PTOSIS [None]
  - FACIAL PARESIS [None]
  - GAZE PALSY [None]
  - GUILLAIN-BARRE SYNDROME [None]
  - MYDRIASIS [None]
  - NEUROPATHY PERIPHERAL [None]
  - PALATAL DISORDER [None]
  - PERONEAL NERVE PALSY [None]
  - PNEUMONIA [None]
  - PUPILLARY REFLEX IMPAIRED [None]
  - QUADRIPARESIS [None]
  - SENSORY DISTURBANCE [None]
